FAERS Safety Report 7743626-X (Version None)
Quarter: 2011Q3

REPORT INFORMATION
  Report Type: 
  Country: None (occurrence: None)
  Receive Date: 20110909
  Receipt Date: 20110909
  Transmission Date: 20111222
  Serious: Yes (Other)
  Sender: FDA-Public Use
  Company Number: None

PATIENT

DRUGS (8)
  1. ACETAMINOPHEN AND HYDROCODONE BITARTRATE [Interacting]
  2. NAPROXEN [Concomitant]
  3. SULFAMETHOXAZOLE AND TRIMETHOPRIM [Suspect]
     Indication: IMPAIRED HEALING
     Dosage: 1 TABLET TWICE DAILY MOUTH 1 ON 1/2/09 THEN TWICE DAILY 1/6 - 1/12/09
     Route: 048
     Dates: start: 20090102
  4. SULFAMETHOXAZOLE AND TRIMETHOPRIM [Suspect]
     Indication: PAIN
     Dosage: 1 TABLET TWICE DAILY MOUTH 1 ON 1/2/09 THEN TWICE DAILY 1/6 - 1/12/09
     Route: 048
     Dates: start: 20090102
  5. SULFAMETHOXAZOLE AND TRIMETHOPRIM [Suspect]
     Indication: CONTUSION
     Dosage: 1 TABLET TWICE DAILY MOUTH 1 ON 1/2/09 THEN TWICE DAILY 1/6 - 1/12/09
     Route: 048
     Dates: start: 20090102
  6. SULFAMETHOXAZOLE AND TRIMETHOPRIM [Suspect]
     Indication: IMPAIRED HEALING
     Dosage: 1 TABLET TWICE DAILY MOUTH 1 ON 1/2/09 THEN TWICE DAILY 1/6 - 1/12/09
     Route: 048
     Dates: start: 20090106, end: 20090112
  7. SULFAMETHOXAZOLE AND TRIMETHOPRIM [Suspect]
     Indication: PAIN
     Dosage: 1 TABLET TWICE DAILY MOUTH 1 ON 1/2/09 THEN TWICE DAILY 1/6 - 1/12/09
     Route: 048
     Dates: start: 20090106, end: 20090112
  8. SULFAMETHOXAZOLE AND TRIMETHOPRIM [Suspect]
     Indication: CONTUSION
     Dosage: 1 TABLET TWICE DAILY MOUTH 1 ON 1/2/09 THEN TWICE DAILY 1/6 - 1/12/09
     Route: 048
     Dates: start: 20090106, end: 20090112

REACTIONS (5)
  - OEDEMA PERIPHERAL [None]
  - SKIN TIGHTNESS [None]
  - VOMITING [None]
  - RASH [None]
  - CARPAL TUNNEL SYNDROME [None]
